FAERS Safety Report 25060672 (Version 1)
Quarter: 2025Q1

REPORT INFORMATION
  Report Type: Spontaneous
  Country: CN (occurrence: CN)
  Receive Date: 20250310
  Receipt Date: 20250310
  Transmission Date: 20250409
  Serious: Yes (Hospitalization)
  Sender: BEIGENE
  Company Number: CN-BEIGENE-BGN-2025-003491

PATIENT
  Age: 53 Year
  Weight: 70 kg

DRUGS (8)
  1. TISLELIZUMAB [Suspect]
     Active Substance: TISLELIZUMAB
     Indication: Gastric cancer
     Dosage: 200 MILLIGRAM, Q3WK D1
  2. TISLELIZUMAB [Suspect]
     Active Substance: TISLELIZUMAB
     Dosage: 200 MILLIGRAM, Q3WK D1
     Route: 041
  3. TISLELIZUMAB [Suspect]
     Active Substance: TISLELIZUMAB
     Dosage: 200 MILLIGRAM, Q3WK D1
     Route: 041
  4. TISLELIZUMAB [Suspect]
     Active Substance: TISLELIZUMAB
     Dosage: 200 MILLIGRAM, Q3WK D1
  5. GIMERACIL\OTERACIL\TEGAFUR [Suspect]
     Active Substance: GIMERACIL\OTERACIL POTASSIUM\TEGAFUR
     Indication: Gastric cancer
     Route: 048
  6. GIMERACIL\OTERACIL\TEGAFUR [Suspect]
     Active Substance: GIMERACIL\OTERACIL POTASSIUM\TEGAFUR
  7. DISITAMAB VEDOTIN [Suspect]
     Active Substance: DISITAMAB VEDOTIN
     Indication: Gastric cancer
     Dosage: 120 MILLIGRAM, Q3WK D1
     Route: 041
  8. DISITAMAB VEDOTIN [Suspect]
     Active Substance: DISITAMAB VEDOTIN
     Dosage: 120 MILLIGRAM, Q3WK D1

REACTIONS (1)
  - Myelosuppression [Recovering/Resolving]
